FAERS Safety Report 10745766 (Version 1)
Quarter: 2015Q1

REPORT INFORMATION
  Report Type: Spontaneous
  Country: US (occurrence: None)
  Receive Date: 20150127
  Receipt Date: 20150127
  Transmission Date: 20150721
  Serious: Yes (Other)
  Sender: FDA-Public Use
  Company Number: None

PATIENT
  Age: 59 Year
  Sex: Male
  Weight: 86.18 kg

DRUGS (3)
  1. NABUMETONE. [Suspect]
     Active Substance: NABUMETONE
     Indication: PAIN
     Dosage: 1 PILL; AS NEEDED 12 HRS
     Route: 048
  2. NABUMETONE. [Suspect]
     Active Substance: NABUMETONE
     Indication: INFLAMMATION
     Dosage: 1 PILL; AS NEEDED 12 HRS
     Route: 048
  3. NABUMETONE. [Suspect]
     Active Substance: NABUMETONE
     Indication: ORAL SURGERY
     Dosage: 1 PILL; AS NEEDED 12 HRS
     Route: 048

REACTIONS (5)
  - Aggression [None]
  - Abnormal behaviour [None]
  - Irritability [None]
  - Emotional disorder [None]
  - Social avoidant behaviour [None]

NARRATIVE: CASE EVENT DATE: 20150126
